FAERS Safety Report 4767970-3 (Version None)
Quarter: 2005Q3

REPORT INFORMATION
  Report Type: 
  Country: None (occurrence: None)
  Receive Date: 20050912
  Receipt Date: 20050831
  Transmission Date: 20060218
  Serious: Yes (Death)
  Sender: FDA-Public Use
  Company Number: 05H-163-0302338-00

PATIENT
  Sex: Female

DRUGS (1)
  1. VITAMIN K1 [Suspect]
     Dosage: INTRAVENOUS
     Route: 042
     Dates: start: 20021002

REACTIONS (1)
  - ADVERSE DRUG REACTION [None]
